FAERS Safety Report 21086307 (Version 1)
Quarter: 2022Q3

REPORT INFORMATION
  Report Type: Spontaneous
  Country: GB (occurrence: GB)
  Receive Date: 20220715
  Receipt Date: 20220715
  Transmission Date: 20221027
  Serious: Yes (Other)
  Sender: FDA-Public Use
  Company Number: None

PATIENT
  Sex: Female

DRUGS (1)
  1. SAXENDA [Suspect]
     Active Substance: LIRAGLUTIDE
     Indication: Weight control
     Dosage: 6 MG/ML
     Dates: start: 20220606

REACTIONS (4)
  - Lower respiratory tract infection [Unknown]
  - Swelling face [Unknown]
  - Dizziness [Unknown]
  - Dyspnoea [Unknown]
